FAERS Safety Report 9021304 (Version 1)
Quarter: 2013Q1

REPORT INFORMATION
  Report Type: Spontaneous
  Country: None (occurrence: US)
  Receive Date: 20130119
  Receipt Date: 20130119
  Transmission Date: 20140127
  Serious: No
  Sender: FDA-Public Use
  Company Number: US-ALLERGAN-1202870US

PATIENT
  Age: 46 Year
  Sex: Male

DRUGS (3)
  1. BOTOX COSMETIC [Suspect]
     Indication: SKIN WRINKLING
     Dosage: 30 UNITS, SINGLE
     Route: 030
     Dates: start: 20110818, end: 20110818
  2. BOTOX COSMETIC [Suspect]
     Indication: SKIN WRINKLING
  3. ZOLPIDEM [Concomitant]
     Indication: INSOMNIA
     Dosage: UNK
     Route: 048

REACTIONS (9)
  - Injection site mass [Recovering/Resolving]
  - Eye swelling [Recovering/Resolving]
  - Toothache [Recovering/Resolving]
  - Sensory disturbance [Recovering/Resolving]
  - Injection site pain [Recovering/Resolving]
  - Facial pain [Recovering/Resolving]
  - Eyelid ptosis [Recovering/Resolving]
  - Drug ineffective [Unknown]
  - VIIth nerve paralysis [Unknown]
